FAERS Safety Report 4337275-3 (Version None)
Quarter: 2004Q2

REPORT INFORMATION
  Report Type: 
  Country: None (occurrence: None)
  Receive Date: 20040413
  Receipt Date: 20040405
  Transmission Date: 20050107
  Serious: Yes (Hospitalization)
  Sender: FDA-Public Use
  Company Number: PHBS2004ES04562

PATIENT
  Age: 82 Year
  Sex: Female

DRUGS (1)
  1. LOPRESSOR [Suspect]
     Indication: CARDIAC DISORDER
     Dosage: 200 MG/DAY
     Route: 048
     Dates: start: 20040217, end: 20040221

REACTIONS (2)
  - BRADYCARDIA [None]
  - SYNCOPE [None]
